FAERS Safety Report 6096621-3 (Version None)
Quarter: 2009Q1

REPORT INFORMATION
  Report Type: 
  Country: None (occurrence: None)
  Receive Date: 20090227
  Receipt Date: 20090217
  Transmission Date: 20090719
  Serious: Yes (Other)
  Sender: FDA-Public Use
  Company Number: GB-NOVOPROD-284195

PATIENT
  Age: 68 Year
  Sex: Female

DRUGS (5)
  1. NOVOMIX 30 [Suspect]
     Indication: INSULIN-REQUIRING TYPE 2 DIABETES MELLITUS
     Dates: start: 20040101
  2. METFORMIN [Concomitant]
     Indication: TYPE 2 DIABETES MELLITUS
  3. LEVEMIR [Concomitant]
     Indication: TYPE 2 DIABETES MELLITUS
  4. HUMALOG [Concomitant]
     Indication: TYPE 2 DIABETES MELLITUS
  5. LANTUS [Concomitant]
     Indication: TYPE 2 DIABETES MELLITUS

REACTIONS (4)
  - ANTI-INSULIN ANTIBODY [None]
  - DIABETES MELLITUS INADEQUATE CONTROL [None]
  - INJECTION SITE HYPERSENSITIVITY [None]
  - INSULIN RESISTANCE [None]
